FAERS Safety Report 18154496 (Version 1)
Quarter: 2020Q3

REPORT INFORMATION
  Report Type: Spontaneous
  Country: FR (occurrence: FR)
  Receive Date: 20200817
  Receipt Date: 20200817
  Transmission Date: 20201103
  Serious: Yes (Life-Threatening, Hospitalization, Other)
  Sender: FDA-Public Use
  Company Number: FR-AUROBINDO-AUR-APL-2020-038740

PATIENT
  Age: 206 Day
  Sex: Female
  Weight: 1.25 kg

DRUGS (5)
  1. OXYCODONE [Suspect]
     Active Substance: OXYCODONE
     Indication: PROCEDURAL PAIN
     Dosage: 5 MILLIGRAM, FOUR TIMES/DAY
     Route: 064
  2. MORPHINE [Suspect]
     Active Substance: MORPHINE
     Indication: PROCEDURAL PAIN
     Dosage: UNK
     Route: 064
  3. NEFOPAM [Suspect]
     Active Substance: NEFOPAM
     Indication: PROCEDURAL PAIN
     Dosage: 120 MILLIGRAM, ONCE A DAY
     Route: 064
  4. MORPHINE [Suspect]
     Active Substance: MORPHINE
     Dosage: UNK, ONCE A DAY (MEAN DOSE OF 50 MG OF OXYNORM )
     Route: 064
  5. ATOSIBAN [Concomitant]
     Active Substance: ATOSIBAN
     Indication: TOCOLYSIS
     Dosage: UNK
     Route: 064

REACTIONS (3)
  - Page kidney [Recovered/Resolved]
  - Foetal megacystis [Recovered/Resolved]
  - Foetal exposure during pregnancy [Recovered/Resolved]
